FAERS Safety Report 19447246 (Version 1)
Quarter: 2021Q2

REPORT INFORMATION
  Report Type: Spontaneous
  Country: US (occurrence: US)
  Receive Date: 20210621
  Receipt Date: 20210621
  Transmission Date: 20210717
  Serious: Yes (Hospitalization)
  Sender: FDA-Public Use
  Company Number: None

PATIENT
  Age: 30 Year
  Sex: Male

DRUGS (2)
  1. TACROLIMUS. [Suspect]
     Active Substance: TACROLIMUS
     Indication: LIVER TRANSPLANT
     Dosage: ?          OTHER FREQUENCY:3 IN AM 2 IN PM;?
     Route: 048
     Dates: start: 20200505
  2. MYCOPHENOLATE [Suspect]
     Active Substance: MYCOPHENOLIC ACID
     Indication: LIVER TRANSPLANT
     Route: 048
     Dates: start: 20200505

REACTIONS (3)
  - Hepatic enzyme increased [None]
  - Jaundice [None]
  - Scleral discolouration [None]

NARRATIVE: CASE EVENT DATE: 20210612
